FAERS Safety Report 8845254 (Version 2)
Quarter: 2012Q4

REPORT INFORMATION
  Report Type: Spontaneous
  Country: US (occurrence: None)
  Receive Date: 20121005
  Receipt Date: 20121024
  Transmission Date: 20130627
  Serious: Yes (Hospitalization, Other)
  Sender: FDA-Public Use
  Company Number: 2012PROUSA02040

PATIENT
  Age: 75 Year
  Sex: Male
  Weight: 74.4 kg

DRUGS (5)
  1. PROVENGE [Suspect]
     Indication: PROSTATE CANCER METASTATIC
     Dosage: 250 ml, single, invtravenous
     Route: 042
     Dates: start: 20120824, end: 20120824
  2. PROVENGE [Suspect]
     Indication: PROSTATE CANCER METASTATIC
     Dosage: 250 ml, single, intravenous
     Route: 042
     Dates: start: 20120907, end: 20120907
  3. PROVENGE [Suspect]
     Indication: PROSTATE CANCER METASTATIC
     Dosage: 250 ml, single, intravenous
     Route: 042
     Dates: start: 20120921, end: 20120921
  4. IBUPROFEN [Concomitant]
  5. XGEVA [Concomitant]

REACTIONS (7)
  - Syncope [None]
  - Troponin increased [None]
  - Renal failure acute [None]
  - Leukocytosis [None]
  - Normochromic normocytic anaemia [None]
  - Oedema peripheral [None]
  - Anxiety [None]
